FAERS Safety Report 23106299 (Version 2)
Quarter: 2023Q4

REPORT INFORMATION
  Report Type: Spontaneous
  Country: US (occurrence: US)
  Receive Date: 20231025
  Receipt Date: 20231208
  Transmission Date: 20240110
  Serious: Yes (Hospitalization, Other)
  Sender: FDA-Public Use
  Company Number: US-JAZZ PHARMACEUTICALS-2023-US-021427

PATIENT
  Age: 35 Year
  Sex: Female
  Weight: 69.4 kg

DRUGS (1)
  1. XYREM [Suspect]
     Active Substance: SODIUM OXYBATE
     Indication: Product used for unknown indication
     Dosage: 4.5 GRAM

REACTIONS (6)
  - Anion gap increased [Recovered/Resolved]
  - Hypotension [Recovered/Resolved]
  - Respiratory depression [Recovered/Resolved]
  - Tachycardia [Recovered/Resolved]
  - Intentional product misuse [Unknown]
  - Overdose [Unknown]
